FAERS Safety Report 7115282-5 (Version None)
Quarter: 2010Q4

REPORT INFORMATION
  Report Type: 
  Country: None (occurrence: None)
  Receive Date: 20101117
  Receipt Date: 20101117
  Transmission Date: 20110411
  Serious: Yes (Hospitalization)
  Sender: FDA-Public Use
  Company Number: None

PATIENT
  Age: 72 Year
  Sex: Male
  Weight: 82.5 kg

DRUGS (13)
  1. DECITABINE - 0.2MG / KG SUB-Q INJECTION 3X PER WEEK [Suspect]
     Indication: REFRACTORY ANAEMIA WITH AN EXCESS OF BLASTS
     Dosage: DECITABINE .2MG/KG SUB-Q SEE SECTION 5 FOR DATES
     Route: 058
  2. ACYCLOVIR SODIUM [Concomitant]
  3. NEXIUM [Concomitant]
  4. TAMSULOSIN [Concomitant]
  5. CIPRO [Concomitant]
  6. FOSFOMYCIN [Concomitant]
  7. AUGMENTIN [Concomitant]
  8. AMICAR [Concomitant]
  9. LASIX [Concomitant]
  10. PROTEGRA [Concomitant]
  11. AMPICILLIN [Concomitant]
  12. AVODART [Concomitant]
  13. K-DUR [Concomitant]

REACTIONS (7)
  - DYSPNOEA [None]
  - FEBRILE NEUTROPENIA [None]
  - HAEMATURIA [None]
  - LIVER FUNCTION TEST ABNORMAL [None]
  - PLEURAL EFFUSION [None]
  - URINARY BLADDER HAEMORRHAGE [None]
  - URINARY TRACT INFECTION [None]
